FAERS Safety Report 8373209-2 (Version None)
Quarter: 2012Q2

REPORT INFORMATION
  Report Type: 
  Country: None (occurrence: None)
  Receive Date: 20120521
  Receipt Date: 20120515
  Transmission Date: 20120825
  Serious: Yes (Death, Other)
  Sender: FDA-Public Use
  Company Number: IN-PFIZER INC-2012079969

PATIENT
  Age: 60 Year
  Sex: Male

DRUGS (1)
  1. SUTENT [Suspect]
     Indication: METASTATIC RENAL CELL CARCINOMA
     Dosage: 37.5 MG, 1X/DAY
     Route: 048
     Dates: start: 20120305, end: 20120416

REACTIONS (7)
  - ASTHENIA [None]
  - MUTISM [None]
  - MUSCULOSKELETAL DISCOMFORT [None]
  - PROTEIN TOTAL DECREASED [None]
  - ABNORMAL BEHAVIOUR [None]
  - PULMONARY OEDEMA [None]
  - PYREXIA [None]
